FAERS Safety Report 21957214 (Version 4)
Quarter: 2024Q1

REPORT INFORMATION
  Report Type: Report from Study
  Country: CH (occurrence: DE)
  Receive Date: 20230206
  Receipt Date: 20240314
  Transmission Date: 20240410
  Serious: Yes (Hospitalization)
  Sender: FDA-Public Use
  Company Number: CH-OPKO PHARMACEUTICALS, LLC.-2023OPK00003

PATIENT
  Age: 70 Year
  Sex: Female
  Weight: 65 kg

DRUGS (13)
  1. RAYALDEE [Suspect]
     Active Substance: CALCIFEDIOL
     Indication: Hyperparathyroidism secondary
     Dosage: 30 MICROGRAM, QD
     Route: 048
     Dates: start: 20220511
  2. RAYALDEE [Suspect]
     Active Substance: CALCIFEDIOL
     Indication: Vitamin D deficiency
  3. PREDNISOLONE [Concomitant]
     Active Substance: PREDNISOLONE
     Indication: Chronic kidney disease
     Dosage: 5 MG, QD
     Route: 048
  4. ASPIRIN [Concomitant]
     Active Substance: ASPIRIN
     Indication: Cardiac failure
     Dosage: 25 MG, QD
     Route: 048
     Dates: start: 20190529
  5. TORSEMIDE [Concomitant]
     Active Substance: TORSEMIDE
     Indication: Cardiac failure
     Dosage: 10 MG, QD
     Route: 048
     Dates: start: 20211210
  6. TACROLIMUS [Concomitant]
     Active Substance: TACROLIMUS
     Indication: Renal transplant
     Dosage: 5 MG, QD
     Route: 048
     Dates: start: 20210914, end: 20220111
  7. TACROLIMUS [Concomitant]
     Active Substance: TACROLIMUS
     Indication: Liver transplant
     Dosage: 2 MG, BID
     Route: 048
     Dates: start: 20221101
  8. CERTICAN [Concomitant]
     Active Substance: EVEROLIMUS
     Indication: Renal transplant
     Dosage: 3 MG, BID
     Route: 048
     Dates: start: 20211104
  9. CERTICAN [Concomitant]
     Active Substance: EVEROLIMUS
     Indication: Liver transplant
  10. ESOMEPRAZOLE [Concomitant]
     Active Substance: ESOMEPRAZOLE
     Indication: Gastritis haemorrhagic
     Dosage: 20 MG, QD
     Route: 048
     Dates: start: 20210914
  11. LEVOTHYROXINE SODIUM [Concomitant]
     Active Substance: LEVOTHYROXINE SODIUM
     Indication: Hyperparathyroidism secondary
     Dosage: 25 MG, QD
     Route: 048
     Dates: start: 20210917
  12. VITAMIN D NOS [Concomitant]
     Active Substance: VITAMIN D NOS
     Indication: Vitamin D deficiency
     Dosage: UNK
  13. MIDODRINE HYDROCHLORIDE [Concomitant]
     Active Substance: MIDODRINE HYDROCHLORIDE
     Indication: Cardiac failure
     Dosage: 2.5 MG, QD
     Route: 048
     Dates: start: 20230922

REACTIONS (2)
  - Acute kidney injury [Recovered/Resolved]
  - Cystitis [Unknown]

NARRATIVE: CASE EVENT DATE: 20230119
